FAERS Safety Report 6749139-6 (Version None)
Quarter: 2010Q2

REPORT INFORMATION
  Report Type: 
  Country: None (occurrence: None)
  Receive Date: 20100601
  Receipt Date: 20100521
  Transmission Date: 20101027
  Serious: Yes (Other)
  Sender: FDA-Public Use
  Company Number: US-RB-010338-10

PATIENT
  Sex: Female

DRUGS (2)
  1. MUCINEX DM [Suspect]
     Dates: start: 20100518
  2. TYLENOL COLD [Concomitant]

REACTIONS (1)
  - HAEMOPTYSIS [None]
